FAERS Safety Report 25169339 (Version 1)
Quarter: 2025Q2

REPORT INFORMATION
  Report Type: Spontaneous
  Country: CN (occurrence: CN)
  Receive Date: 20250407
  Receipt Date: 20250407
  Transmission Date: 20250717
  Serious: Yes (Other)
  Sender: ROCHE
  Company Number: CN-BoehringerIngelheim-2025-BI-019391

PATIENT
  Age: 82 Year
  Sex: Female
  Weight: 44 kg

DRUGS (2)
  1. ALTEPLASE [Suspect]
     Active Substance: ALTEPLASE
     Indication: Thrombolysis
     Route: 042
     Dates: start: 20250318
  2. ALTEPLASE [Suspect]
     Active Substance: ALTEPLASE
     Dosage: CONTINUOUS MICRO-PUMP FOR THE REMAINING DOSE
     Route: 042
     Dates: start: 20250318

REACTIONS (2)
  - Haemorrhage intracranial [Not Recovered/Not Resolved]
  - Condition aggravated [Not Recovered/Not Resolved]

NARRATIVE: CASE EVENT DATE: 20250318
